FAERS Safety Report 12471889 (Version 2)
Quarter: 2016Q2

REPORT INFORMATION
  Report Type: Spontaneous
  Country: BR (occurrence: BR)
  Receive Date: 20160616
  Receipt Date: 20160630
  Transmission Date: 20160815
  Serious: Yes (Hospitalization)
  Sender: FDA-Public Use
  Company Number: BR-PFIZER INC-2016299721

PATIENT
  Age: 38 Year
  Sex: Male
  Weight: 97 kg

DRUGS (5)
  1. PROFERGAN [Suspect]
     Active Substance: PROMETHAZINE HYDROCHLORIDE
     Indication: SLEEP DISORDER THERAPY
     Dosage: TWO TABLETS (50 MG), 1X/DAY (AT NIGHT)
     Dates: start: 2008
  2. DIPYRONE [Suspect]
     Active Substance: DIPYRONE
     Indication: HEADACHE
     Dosage: 40 DF, AS NEEDED
  3. CLONAZEPAM. [Concomitant]
     Active Substance: CLONAZEPAM
     Dosage: 2 TABLETS (4 MG), 1X/DAY (AT NIGHT)
  4. PROFERGAN [Suspect]
     Active Substance: PROMETHAZINE HYDROCHLORIDE
     Dosage: 8 TABLETS (200 MG), 1X/DAY (AT NIGHT)
  5. NITRAZEPAM [Concomitant]
     Active Substance: NITRAZEPAM
     Dosage: 3 TABLETS (9 MG), 1X/DAY

REACTIONS (10)
  - Vision blurred [Not Recovered/Not Resolved]
  - Headache [Not Recovered/Not Resolved]
  - Weight decreased [Not Recovered/Not Resolved]
  - Drug ineffective [Unknown]
  - Umbilical hernia [Unknown]
  - Intentional product misuse [Recovered/Resolved]
  - Overdose [Unknown]
  - Dizziness [Not Recovered/Not Resolved]
  - Dry mouth [Not Recovered/Not Resolved]
  - Nausea [Not Recovered/Not Resolved]

NARRATIVE: CASE EVENT DATE: 201601
